FAERS Safety Report 16199706 (Version 7)
Quarter: 2022Q2

REPORT INFORMATION
  Report Type: Report from Study
  Country: OM (occurrence: OM)
  Receive Date: 20190415
  Receipt Date: 20220615
  Transmission Date: 20220721
  Serious: Yes (Hospitalization, Other)
  Sender: FDA-Public Use
  Company Number: PHHY2018OM131743

PATIENT
  Age: 17 Year
  Sex: Male
  Weight: 46 kg

DRUGS (7)
  1. EXJADE [Suspect]
     Active Substance: DEFERASIROX
     Indication: Liver iron concentration increased
     Dosage: 35 MG/KG, (1500 MG) QD
     Route: 048
     Dates: start: 201703
  2. EXJADE [Suspect]
     Active Substance: DEFERASIROX
     Indication: Serum ferritin increased
     Dosage: UNK
     Route: 065
     Dates: start: 20180503, end: 20180503
  3. EXJADE [Suspect]
     Active Substance: DEFERASIROX
     Dosage: UNK
     Route: 065
     Dates: start: 20180504, end: 20180506
  4. EXJADE [Suspect]
     Active Substance: DEFERASIROX
     Dosage: UNK
     Route: 065
     Dates: start: 20180504, end: 20180510
  5. EXJADE [Suspect]
     Active Substance: DEFERASIROX
     Dosage: UNK
     Route: 065
     Dates: start: 20180507, end: 20180513
  6. EXJADE [Suspect]
     Active Substance: DEFERASIROX
     Dosage: UNK
     Route: 065
     Dates: start: 20180508, end: 20180909
  7. MEROPENEM [Concomitant]
     Active Substance: MEROPENEM
     Indication: Product used for unknown indication
     Dosage: UNK
     Route: 065

REACTIONS (8)
  - Portal vein thrombosis [Recovered/Resolved]
  - Post procedural haemorrhage [Recovered/Resolved]
  - Sepsis [Recovered/Resolved]
  - Blood pressure decreased [Unknown]
  - Haemoglobin decreased [Unknown]
  - Chest pain [Unknown]
  - Vomiting [Unknown]
  - Procedural pain [Unknown]

NARRATIVE: CASE EVENT DATE: 20180502
